FAERS Safety Report 25544274 (Version 1)
Quarter: 2025Q3

REPORT INFORMATION
  Report Type: Spontaneous
  Country: US (occurrence: US)
  Receive Date: 20250711
  Receipt Date: 20250711
  Transmission Date: 20251021
  Serious: Yes (Other)
  Sender: AMGEN
  Company Number: US-AMGEN-USASP2025133004

PATIENT

DRUGS (2)
  1. BEVACIZUMAB [Suspect]
     Active Substance: BEVACIZUMAB
     Indication: Metastases to eye
  2. VERTEPORFIN [Concomitant]
     Active Substance: VERTEPORFIN
     Indication: Metastases to eye
     Route: 040

REACTIONS (8)
  - Metastases to eye [Unknown]
  - Subretinal fibrosis [Unknown]
  - Visual acuity reduced [Unknown]
  - Retinal pigment epithelium change [Unknown]
  - Drug effective for unapproved indication [Unknown]
  - Disruption of the photoreceptor inner segment-outer segment [Unknown]
  - Macular pseudohole [Unknown]
  - Off label use [Unknown]
